FAERS Safety Report 7785125-5 (Version None)
Quarter: 2011Q3

REPORT INFORMATION
  Report Type: 
  Country: None (occurrence: None)
  Receive Date: 20110929
  Receipt Date: 20110919
  Transmission Date: 20111222
  Serious: No
  Sender: FDA-Public Use
  Company Number: US-BIOGENIDEC-2011BI036116

PATIENT
  Sex: Female

DRUGS (5)
  1. CIPRO EAR DROPS [Concomitant]
     Indication: TRIGEMINAL NEURALGIA
  2. TEGRETOL [Concomitant]
     Indication: TRIGEMINAL NEURALGIA
     Dates: start: 20070101
  3. EAR DROPS (NOS) [Concomitant]
     Indication: TRIGEMINAL NEURALGIA
  4. TYSABRI [Suspect]
     Indication: MULTIPLE SCLEROSIS
     Route: 042
     Dates: start: 20080122
  5. TEGRETOL [Concomitant]
     Indication: CONVULSION
     Dates: start: 20070101

REACTIONS (7)
  - CARDIAC DISORDER [None]
  - BACTERIAL INFECTION [None]
  - GRANULOMA [None]
  - VOMITING PROJECTILE [None]
  - SOMATOFORM DISORDER [None]
  - SPEECH DISORDER [None]
  - ABDOMINAL PAIN UPPER [None]
